FAERS Safety Report 5897960-9 (Version None)
Quarter: 2008Q3

REPORT INFORMATION
  Report Type: 
  Country: None (occurrence: None)
  Receive Date: 20080925
  Receipt Date: 20080919
  Transmission Date: 20090109
  Serious: Yes (Other)
  Sender: FDA-Public Use
  Company Number: B0530372A

PATIENT
  Age: 43 Year
  Sex: Female

DRUGS (2)
  1. EPIVIR [Suspect]
     Dosage: 300MG PER DAY
     Dates: start: 20060623, end: 20060623
  2. ZIAGEN [Suspect]
     Dosage: 600MG PER DAY
     Dates: start: 20060623

REACTIONS (3)
  - ABORTION SPONTANEOUS [None]
  - DRUG EXPOSURE DURING PREGNANCY [None]
  - ULTRASOUND SCAN ABNORMAL [None]
